FAERS Safety Report 6577052-6 (Version None)
Quarter: 2010Q1

REPORT INFORMATION
  Report Type: 
  Country: None (occurrence: None)
  Receive Date: 20100210
  Receipt Date: 20100110
  Transmission Date: 20100710
  Serious: No
  Sender: FDA-Public Use
  Company Number: US-BAYER-201011046NA

PATIENT
  Age: 45 Year
  Sex: Male
  Weight: 113 kg

DRUGS (1)
  1. CIPRO [Suspect]
     Indication: URINARY TRACT INFECTION
     Dates: start: 20100107

REACTIONS (1)
  - MUSCULOSKELETAL STIFFNESS [None]
